FAERS Safety Report 18097352 (Version 3)
Quarter: 2023Q2

REPORT INFORMATION
  Report Type: Spontaneous
  Country: US (occurrence: US)
  Receive Date: 20200731
  Receipt Date: 20230421
  Transmission Date: 20230721
  Serious: No
  Sender: FDA-Public Use
  Company Number: US-GILEAD-2020-0486813

PATIENT
  Sex: Female
  Weight: 112.94 kg

DRUGS (52)
  1. ATRIPLA [Suspect]
     Active Substance: EFAVIRENZ\EMTRICITABINE\TENOFOVIR DISOPROXIL FUMARATE
     Indication: HIV infection
     Dosage: UNK
     Route: 048
     Dates: start: 20100809, end: 20110119
  2. ATRIPLA [Suspect]
     Active Substance: EFAVIRENZ\EMTRICITABINE\TENOFOVIR DISOPROXIL FUMARATE
     Dosage: UNK
     Route: 048
     Dates: start: 20120319, end: 20120529
  3. ATRIPLA [Suspect]
     Active Substance: EFAVIRENZ\EMTRICITABINE\TENOFOVIR DISOPROXIL FUMARATE
     Dosage: UNK
     Route: 048
     Dates: start: 20120529, end: 201209
  4. ATRIPLA [Suspect]
     Active Substance: EFAVIRENZ\EMTRICITABINE\TENOFOVIR DISOPROXIL FUMARATE
     Dosage: UNK
     Route: 048
     Dates: start: 20121018, end: 20121112
  5. ATRIPLA [Suspect]
     Active Substance: EFAVIRENZ\EMTRICITABINE\TENOFOVIR DISOPROXIL FUMARATE
     Dosage: UNK
     Route: 048
     Dates: start: 20121112, end: 20130313
  6. ATRIPLA [Suspect]
     Active Substance: EFAVIRENZ\EMTRICITABINE\TENOFOVIR DISOPROXIL FUMARATE
     Dosage: UNK
     Route: 048
     Dates: start: 20130320, end: 20130707
  7. ATRIPLA [Suspect]
     Active Substance: EFAVIRENZ\EMTRICITABINE\TENOFOVIR DISOPROXIL FUMARATE
     Dosage: UNK
     Route: 048
     Dates: start: 20130707, end: 20151225
  8. ATRIPLA [Suspect]
     Active Substance: EFAVIRENZ\EMTRICITABINE\TENOFOVIR DISOPROXIL FUMARATE
     Dosage: UNK
     Route: 048
     Dates: start: 20160113, end: 20180831
  9. ATRIPLA [Suspect]
     Active Substance: EFAVIRENZ\EMTRICITABINE\TENOFOVIR DISOPROXIL FUMARATE
     Dosage: UNK
     Route: 048
     Dates: start: 20100809, end: 201808
  10. BIKTARVY [Concomitant]
     Active Substance: BICTEGRAVIR SODIUM\EMTRICITABINE\TENOFOVIR ALAFENAMIDE FUMARATE
     Indication: HIV infection
  11. AMLODIPINE [Concomitant]
     Active Substance: AMLODIPINE BESYLATE
  12. AMLODIPINE BESYLATE [Concomitant]
     Active Substance: AMLODIPINE BESYLATE
  13. AMOXICILLIN [Concomitant]
     Active Substance: AMOXICILLIN
  14. ATORVASTATIN [Concomitant]
     Active Substance: ATORVASTATIN
  15. BACLOFEN [Concomitant]
     Active Substance: BACLOFEN
  16. BENZONATATE [Concomitant]
     Active Substance: BENZONATATE
  17. BENZTROPINE [Concomitant]
     Active Substance: BENZTROPINE
  18. BUSPIRONE [Concomitant]
     Active Substance: BUSPIRONE HYDROCHLORIDE
  19. CETIRIZINE [Concomitant]
     Active Substance: CETIRIZINE HYDROCHLORIDE
  20. CETIRIZINE HCL [Concomitant]
     Active Substance: CETIRIZINE HYDROCHLORIDE
  21. CITALOPRAM [Concomitant]
     Active Substance: CITALOPRAM HYDROBROMIDE
  22. CLONIDINE [Concomitant]
     Active Substance: CLONIDINE
  23. CYCLOBENZAPRINE [Concomitant]
     Active Substance: CYCLOBENZAPRINE
  24. DOC-Q-LAX [Concomitant]
  25. DOCUSATE\SENNOSIDES [Concomitant]
     Active Substance: DOCUSATE\SENNOSIDES
  26. FLUCONAZOLE [Concomitant]
     Active Substance: FLUCONAZOLE
  27. GABAPENTIN [Concomitant]
     Active Substance: GABAPENTIN
  28. HYDROCHLOROTHIAZIDE [Concomitant]
     Active Substance: HYDROCHLOROTHIAZIDE
  29. HYDROXYZINE [Concomitant]
     Active Substance: HYDROXYZINE HYDROCHLORIDE
  30. IBUPROFEN [Concomitant]
     Active Substance: IBUPROFEN
  31. LISINOPRIL [Concomitant]
     Active Substance: LISINOPRIL
  32. LORAZEPAM [Concomitant]
     Active Substance: LORAZEPAM
  33. MELOXICAM [Concomitant]
     Active Substance: MELOXICAM
  34. METFORMIN [Concomitant]
     Active Substance: METFORMIN HYDROCHLORIDE
  35. METHOCARBAMOL [Concomitant]
     Active Substance: METHOCARBAMOL
  36. MIRTAZAPINE [Concomitant]
     Active Substance: MIRTAZAPINE
  37. NAPROXEN [Concomitant]
     Active Substance: NAPROXEN
  38. NITROFURANTOIN MONOHYDRATE [Concomitant]
     Active Substance: NITROFURANTOIN MONOHYDRATE
  39. NORGESTIMATE [Concomitant]
     Active Substance: NORGESTIMATE
  40. NORTRIPTYLINE [Concomitant]
     Active Substance: NORTRIPTYLINE
  41. ORTHO TRI CYCLEN LO [Concomitant]
     Active Substance: ETHINYL ESTRADIOL\NORGESTIMATE
  42. OXCARBAZEPINE [Concomitant]
     Active Substance: OXCARBAZEPINE
  43. PERPHENAZINE [Concomitant]
     Active Substance: PERPHENAZINE
  44. PITAVASTATIN [Concomitant]
     Active Substance: PITAVASTATIN
  45. RANITIDINE [Concomitant]
     Active Substance: RANITIDINE
  46. RISPERIDONE [Concomitant]
     Active Substance: RISPERIDONE
  47. SENNA PLUS [Concomitant]
     Active Substance: DOCUSATE SODIUM\SENNOSIDES\SENNOSIDES A AND B
  48. SERTRALINE [Concomitant]
     Active Substance: SERTRALINE HYDROCHLORIDE
  49. SULINDAC [Concomitant]
     Active Substance: SULINDAC
  50. TRAMADOL [Concomitant]
     Active Substance: TRAMADOL
  51. HYDROCHLOROTHIAZIDE\TRIAMTERENE [Concomitant]
     Active Substance: HYDROCHLOROTHIAZIDE\TRIAMTERENE
  52. VITAMIN D2 [Concomitant]
     Active Substance: ERGOCALCIFEROL

REACTIONS (6)
  - Intervertebral disc degeneration [Unknown]
  - Osteopenia [Not Recovered/Not Resolved]
  - Emotional distress [Not Recovered/Not Resolved]
  - Anhedonia [Not Recovered/Not Resolved]
  - Anxiety [Not Recovered/Not Resolved]
  - Pain [Not Recovered/Not Resolved]

NARRATIVE: CASE EVENT DATE: 20130101
